FAERS Safety Report 6109482-0 (Version None)
Quarter: 2009Q1

REPORT INFORMATION
  Report Type: 
  Country: None (occurrence: None)
  Receive Date: 20090310
  Receipt Date: 20090227
  Transmission Date: 20090719
  Serious: Yes (Other)
  Sender: FDA-Public Use
  Company Number: CA-JNJFOC-20090300861

PATIENT
  Sex: Female
  Weight: 74 kg

DRUGS (4)
  1. REMICADE [Suspect]
     Dosage: 18TH INFUSION
  2. REMICADE [Suspect]
     Indication: CROHN'S DISEASE
  3. BENADRYL [Concomitant]
     Route: 048
  4. SOLU-CORTEF [Concomitant]
     Route: 042

REACTIONS (3)
  - BIOPSY BREAST ABNORMAL [None]
  - BIOPSY LYMPH GLAND ABNORMAL [None]
  - MASTECTOMY [None]
